FAERS Safety Report 10552999 (Version 4)
Quarter: 2015Q3

REPORT INFORMATION
  Report Type: Report from Study
  Country: BR (occurrence: BR)
  Receive Date: 20141029
  Receipt Date: 20150702
  Transmission Date: 20151125
  Serious: Yes (Hospitalization, Other)
  Sender: FDA-Public Use
  Company Number: BR-ABBVIE-14K-020-1279296-00

PATIENT
  Age: 37 Year
  Sex: Female
  Weight: 113 kg

DRUGS (8)
  1. HUMIRA [Suspect]
     Active Substance: ADALIMUMAB
     Route: 058
  2. SERTRALINE HYDROCHLORIDE. [Concomitant]
     Active Substance: SERTRALINE HYDROCHLORIDE
     Indication: ANXIETY
     Route: 048
     Dates: start: 201309
  3. PURAN [Concomitant]
     Active Substance: LEVOTHYROXINE SODIUM
     Indication: HYPOTHYROIDISM
     Route: 048
     Dates: start: 2008
  4. TRAMAL [Concomitant]
     Active Substance: TRAMADOL
     Indication: PAIN
     Route: 050
  5. HUMIRA [Suspect]
     Active Substance: ADALIMUMAB
     Indication: RHEUMATOID ARTHRITIS
     Route: 058
     Dates: start: 20130611, end: 20140815
  6. PURAN [Concomitant]
     Active Substance: LEVOTHYROXINE SODIUM
     Route: 048
     Dates: start: 2010
  7. PREDNISONE. [Concomitant]
     Active Substance: PREDNISONE
     Indication: ARTHRITIS
     Route: 048
     Dates: start: 2010
  8. PREDNISONE. [Concomitant]
     Active Substance: PREDNISONE
     Indication: NODULE
     Route: 061
     Dates: start: 201411

REACTIONS (18)
  - Menstruation irregular [Not Recovered/Not Resolved]
  - Ovarian enlargement [Unknown]
  - Nodule [Not Recovered/Not Resolved]
  - Skin mass [Not Recovered/Not Resolved]
  - Benign fallopian tube neoplasm [Recovered/Resolved]
  - Uterine enlargement [Not Recovered/Not Resolved]
  - Benign ovarian tumour [Recovered/Resolved]
  - Nephrolithiasis [Recovered/Resolved]
  - Cholelithiasis [Recovered/Resolved]
  - Musculoskeletal pain [Recovering/Resolving]
  - Pulmonary embolism [Unknown]
  - Pain [Recovering/Resolving]
  - Scar [Unknown]
  - Musculoskeletal stiffness [Recovering/Resolving]
  - Pain [Unknown]
  - Uterine leiomyoma [Recovered/Resolved]
  - Musculoskeletal stiffness [Recovering/Resolving]
  - Rheumatoid arthritis [Recovering/Resolving]

NARRATIVE: CASE EVENT DATE: 201307
